FAERS Safety Report 8991878 (Version 1)
Quarter: 2012Q4

REPORT INFORMATION
  Report Type: Report from Study
  Country: CA (occurrence: CA)
  Receive Date: 20121231
  Receipt Date: 20121231
  Transmission Date: 20130627
  Serious: Yes (Other)
  Sender: FDA-Public Use
  Company Number: CA-ROCHE-1165285

PATIENT
  Age: 44 Year
  Sex: Female
  Weight: 98.11 kg

DRUGS (2)
  1. OMALIZUMAB [Suspect]
     Indication: ASTHMA
     Route: 058
     Dates: start: 20060529
  2. INSULIN [Concomitant]

REACTIONS (24)
  - Loss of consciousness [Not Recovered/Not Resolved]
  - Menorrhagia [Unknown]
  - Blood pressure increased [Unknown]
  - Contusion [Unknown]
  - Bronchitis [Not Recovered/Not Resolved]
  - Dyspnoea [Not Recovered/Not Resolved]
  - Depression [Unknown]
  - Migraine [Unknown]
  - Blood glucose increased [Recovered/Resolved]
  - Tooth abscess [Not Recovered/Not Resolved]
  - Hypotension [Unknown]
  - Ecchymosis [Unknown]
  - Wound [Unknown]
  - Fall [Unknown]
  - Hyperthermia [Recovered/Resolved]
  - Productive cough [Recovering/Resolving]
  - Dysphonia [Recovering/Resolving]
  - Tendonitis [Recovering/Resolving]
  - Bursitis [Recovering/Resolving]
  - Nausea [Recovered/Resolved]
  - Pyrexia [Recovered/Resolved]
  - Headache [Recovered/Resolved]
  - Somnolence [Recovered/Resolved]
  - Fatigue [Unknown]
